FAERS Safety Report 16173097 (Version 1)
Quarter: 2019Q2

REPORT INFORMATION
  Report Type: Spontaneous
  Country: US (occurrence: US)
  Receive Date: 20190409
  Receipt Date: 20190409
  Transmission Date: 20190711
  Serious: Yes (Other)
  Sender: FDA-Public Use
  Company Number: US-NOVOPROD-655568

PATIENT
  Age: 46 Year
  Sex: Male

DRUGS (1)
  1. NOVOLOG [Suspect]
     Active Substance: INSULIN ASPART
     Indication: TYPE 2 DIABETES MELLITUS
     Dosage: UNK
     Route: 058

REACTIONS (7)
  - Dyspnoea [Unknown]
  - Slow speech [Unknown]
  - Cardiac failure [Unknown]
  - Hypertension [Unknown]
  - Condition aggravated [Unknown]
  - Myocardial infarction [Unknown]
  - Swollen tongue [Unknown]

NARRATIVE: CASE EVENT DATE: 201807
